FAERS Safety Report 11263578 (Version 3)
Quarter: 2015Q3

REPORT INFORMATION
  Report Type: Spontaneous
  Country: US (occurrence: US)
  Receive Date: 20150713
  Receipt Date: 20150826
  Transmission Date: 20151125
  Serious: Yes (Life-Threatening, Hospitalization)
  Sender: FDA-Public Use
  Company Number: US-ROCHE-1606931

PATIENT
  Age: 28 Year
  Sex: Female
  Weight: 165.71 kg

DRUGS (4)
  1. AYGESTIN [Concomitant]
     Active Substance: NORETHINDRONE ACETATE
  2. BISOPROLOL FUMARATE. [Concomitant]
     Active Substance: BISOPROLOL FUMARATE
     Route: 048
     Dates: start: 20150617
  3. ACTEMRA [Suspect]
     Active Substance: TOCILIZUMAB
     Indication: RHEUMATOID ARTHRITIS
     Dosage: RECEIVED ONE DOSE
     Route: 042
     Dates: start: 20150603
  4. PREDNISONE. [Concomitant]
     Active Substance: PREDNISONE
     Route: 003

REACTIONS (2)
  - Deep vein thrombosis [Unknown]
  - Pulmonary embolism [Unknown]

NARRATIVE: CASE EVENT DATE: 20150608
